FAERS Safety Report 20374286 (Version 1)
Quarter: 2022Q1

REPORT INFORMATION
  Report Type: Spontaneous
  Country: JP (occurrence: JP)
  Receive Date: 20220125
  Receipt Date: 20220125
  Transmission Date: 20220423
  Serious: Yes (Other)
  Sender: FDA-Public Use
  Company Number: JP-PFIZER INC-202200083047

PATIENT
  Age: 73 Year
  Sex: Male

DRUGS (1)
  1. AMPICILLIN SODIUM\SULBACTAM SODIUM [Suspect]
     Active Substance: AMPICILLIN SODIUM\SULBACTAM SODIUM
     Indication: Pneumonia mycoplasmal
     Dosage: UNK

REACTIONS (3)
  - Pulmonary toxicity [Unknown]
  - Pneumonitis [Unknown]
  - Off label use [Unknown]
